FAERS Safety Report 15647438 (Version 3)
Quarter: 2019Q1

REPORT INFORMATION
  Report Type: Spontaneous
  Country: CA (occurrence: CA)
  Receive Date: 20181122
  Receipt Date: 20190322
  Transmission Date: 20190417
  Serious: Yes (Other)
  Sender: FDA-Public Use
  Company Number: CA-CELLTRION INC.-2018CA021510

PATIENT

DRUGS (8)
  1. INFLECTRA [Suspect]
     Active Substance: INFLIXIMAB-DYYB
     Indication: PSORIATIC ARTHROPATHY
     Dosage: 5 MG/KG, (EVERY 0, 2,6 WEEKS THEN EVERY 8 WEEKS);
     Route: 042
     Dates: start: 20180620, end: 20180620
  2. INFLECTRA [Suspect]
     Active Substance: INFLIXIMAB-DYYB
     Dosage: 5 MG/KG, (EVERY 0, 2,6 WEEKS THEN EVERY 8 WEEKS);
     Route: 042
     Dates: start: 20180711, end: 20180711
  3. LEFLUNOMIDE. [Concomitant]
     Active Substance: LEFLUNOMIDE
     Dosage: UNK
  4. INFLECTRA [Suspect]
     Active Substance: INFLIXIMAB-DYYB
     Dosage: 6 MG/KG, EVERY 6 WEEKS;
     Route: 065
  5. INFLECTRA [Suspect]
     Active Substance: INFLIXIMAB-DYYB
     Dosage: 5 MG/KG, (EVERY 0, 2,6 WEEKS THEN EVERY 8 WEEKS);
     Route: 042
     Dates: start: 20180802
  6. INFLECTRA [Suspect]
     Active Substance: INFLIXIMAB-DYYB
     Dosage: 5 MG/KG, (EVERY 0, 2,6 WEEKS THEN EVERY 8 WEEKS);
     Route: 042
     Dates: start: 20180927
  7. INFLECTRA [Suspect]
     Active Substance: INFLIXIMAB-DYYB
     Dosage: 10 MG/KG, (EVERY 8 WEEKS)
     Route: 042
  8. INFLECTRA [Suspect]
     Active Substance: INFLIXIMAB-DYYB
     Dosage: UNK
     Route: 065
     Dates: start: 20181108, end: 20181108

REACTIONS (8)
  - Impaired healing [Recovering/Resolving]
  - Umbilical hernia [Recovering/Resolving]
  - Secretion discharge [Recovering/Resolving]
  - Headache [Recovered/Resolved]
  - Drug ineffective [Unknown]
  - Dizziness [Recovered/Resolved]
  - Blood pressure fluctuation [Unknown]
  - Product use issue [Unknown]

NARRATIVE: CASE EVENT DATE: 20180802
